FAERS Safety Report 7640873-2 (Version None)
Quarter: 2011Q3

REPORT INFORMATION
  Report Type: 
  Country: None (occurrence: None)
  Receive Date: 20110728
  Receipt Date: 20110717
  Transmission Date: 20111222
  Serious: Yes (Other)
  Sender: FDA-Public Use
  Company Number: CA-JNJFOC-20110710320

PATIENT
  Sex: Male

DRUGS (3)
  1. PENTASA [Concomitant]
     Indication: MATERNAL EXPOSURE DURING PREGNANCY
     Route: 064
     Dates: start: 20100716
  2. REMICADE [Suspect]
     Indication: MATERNAL EXPOSURE DURING PREGNANCY
     Route: 064
     Dates: start: 20100720, end: 20101019
  3. PREDNISONE [Concomitant]
     Indication: MATERNAL EXPOSURE DURING PREGNANCY
     Dosage: TAPERING DOWN
     Route: 064
     Dates: start: 20100516, end: 20100716

REACTIONS (1)
  - PREMATURE BABY [None]
